FAERS Safety Report 8807600 (Version 4)
Quarter: 2014Q2

REPORT INFORMATION
  Report Type: Report from Study
  Country: FR (occurrence: FR)
  Receive Date: 20120925
  Receipt Date: 20140613
  Transmission Date: 20141212
  Serious: Yes (Life-Threatening, Hospitalization, Other)
  Sender: FDA-Public Use
  Company Number: FR-GILEAD-2012-0059586

PATIENT
  Age: 36 Year
  Sex: Male
  Weight: 98 kg

DRUGS (3)
  1. ELVITEGRAVIR/EMTRICITABINE/TENOFOVIR DF/COBICISTAT [Suspect]
     Indication: HIV INFECTION
     Dosage: 1 DF, QD
     Route: 048
     Dates: start: 20120618, end: 20120806
  2. ARIPIPRAZOLE [Suspect]
     Indication: DEPRESSION
     Dosage: UNK
     Route: 065
     Dates: start: 20120603, end: 20120808
  3. DULOXETINE [Suspect]
     Indication: DEPRESSION
     Dosage: UNK
     Route: 065
     Dates: start: 20120603, end: 20120808

REACTIONS (2)
  - Suicide attempt [Recovered/Resolved with Sequelae]
  - Major depression [Recovered/Resolved]
